FAERS Safety Report 10188058 (Version 1)
Quarter: 2014Q2

REPORT INFORMATION
  Report Type: Spontaneous
  Country: US (occurrence: None)
  Receive Date: 20140521
  Receipt Date: 20140521
  Transmission Date: 20141212
  Serious: Yes (Hospitalization, Other)
  Sender: FDA-Public Use
  Company Number: None

PATIENT
  Age: 28 Year
  Sex: Male
  Weight: 108.86 kg

DRUGS (2)
  1. Z PACK [Suspect]
     Indication: SINUSITIS
     Dosage: 2 1ST DAY, 1 AFTER
     Dates: start: 201002
  2. Z PACK [Suspect]
     Indication: SINUSITIS
     Dosage: 2 1ST DAY 1 AFTER 8 DAYS
     Dates: start: 201404

REACTIONS (11)
  - Diplopia [None]
  - Vertigo [None]
  - Hypoaesthesia [None]
  - Cerebrovascular accident [None]
  - Palpitations [None]
  - Depression [None]
  - Panic attack [None]
  - Headache [None]
  - Asthenia [None]
  - Decreased appetite [None]
  - Platelet count increased [None]
